FAERS Safety Report 9645138 (Version 1)
Quarter: 2013Q4

REPORT INFORMATION
  Report Type: Spontaneous
  Country: US (occurrence: None)
  Receive Date: 20131023
  Receipt Date: 20131023
  Transmission Date: 20140711
  Serious: Yes (Other)
  Sender: FDA-Public Use
  Company Number: None

PATIENT
  Age: 23 Year
  Sex: Female
  Weight: 104 kg

DRUGS (3)
  1. MORPHINE [Suspect]
     Indication: SPINAL ANAESTHESIA
  2. BUPIVACAINE [Concomitant]
  3. FENTANYL [Concomitant]

REACTIONS (2)
  - Drug effect decreased [None]
  - Inadequate analgesia [None]
